FAERS Safety Report 9255513 (Version 1)
Quarter: 2013Q1

REPORT INFORMATION
  Report Type: Spontaneous
  Country: US (occurrence: None)
  Receive Date: 20121203
  Receipt Date: 20121203
  Transmission Date: 20140127
  Serious: Yes (Other)
  Sender: FDA-Public Use
  Company Number: FK201200646

PATIENT
  Sex: Female

DRUGS (1)
  1. ETOPOSIDE INJECTION, USP (ETOPOSIDE) (ETOPOSIDE) [Suspect]
     Indication: CHEMOTHERAPY

REACTIONS (6)
  - Accidental exposure to product [None]
  - Nausea [None]
  - Erythema [None]
  - Pruritus [None]
  - Asthma [None]
  - Rash [None]
